FAERS Safety Report 8293219-3 (Version None)
Quarter: 2012Q2

REPORT INFORMATION
  Report Type: 
  Country: None (occurrence: None)
  Receive Date: 20120417
  Receipt Date: 20111011
  Transmission Date: 20120825
  Serious: No
  Sender: FDA-Public Use
  Company Number: US-ASTRAZENECA-2010SE53936

PATIENT
  Age: 57 Year
  Sex: Male

DRUGS (1)
  1. NEXIUM [Suspect]
     Route: 048

REACTIONS (14)
  - EAR INFECTION FUNGAL [None]
  - CONTUSION [None]
  - ANXIETY [None]
  - FALL [None]
  - INFLUENZA [None]
  - JOINT DISLOCATION [None]
  - DYSPNOEA [None]
  - DEPRESSION [None]
  - VOMITING [None]
  - MYALGIA [None]
  - MALAISE [None]
  - LIMB INJURY [None]
  - GASTRIC DISORDER [None]
  - DRUG DOSE OMISSION [None]
